FAERS Safety Report 9185264 (Version 2)
Quarter: 2013Q1

REPORT INFORMATION
  Report Type: Spontaneous
  Country: US (occurrence: None)
  Receive Date: 20130321
  Receipt Date: 20130327
  Transmission Date: 20140127
  Serious: Yes (Death, Hospitalization)
  Sender: FDA-Public Use
  Company Number: UTC-030124

PATIENT
  Age: 74 Year
  Sex: Female
  Weight: 65 kg

DRUGS (3)
  1. REMODULIN (5 MILLIGRAM/MILLILITERS, INJECTION FOR INFUSION) (TREPROSTINIL SODIUM) [Suspect]
     Indication: COR PULMONALE CHRONIC
     Dosage: 146.88 UG/KG (0.102 UG/KG, 1 IN 1 MIN), INTRAVENOUS DRIP
     Route: 041
     Dates: start: 20060504
  2. REVATIO (SILDENAFIL CITRATE) (UNKNOWN) [Concomitant]
  3. TRACLEER (BOSENTAN) (UNKNOWN) [Concomitant]
     Dates: start: 20060505

REACTIONS (6)
  - Pulmonary hypertension [None]
  - Gastric perforation [None]
  - Duodenal perforation [None]
  - Hypoxia [None]
  - Hypotension [None]
  - Sepsis [None]
